FAERS Safety Report 11431611 (Version 1)
Quarter: 2015Q3

REPORT INFORMATION
  Report Type: Spontaneous
  Country: CA (occurrence: CA)
  Receive Date: 20150828
  Receipt Date: 20150828
  Transmission Date: 20151125
  Serious: Yes (Other)
  Sender: FDA-Public Use
  Company Number: CA-AMGEN-CANSP2014097721

PATIENT
  Age: 55 Year
  Sex: Female

DRUGS (15)
  1. RITUXAN [Suspect]
     Active Substance: RITUXIMAB
     Indication: RHEUMATOID ARTHRITIS
     Dosage: UNK
     Route: 065
  2. LYRICA [Concomitant]
     Active Substance: PREGABALIN
     Dosage: UNK
  3. ORENCIA [Concomitant]
     Active Substance: ABATACEPT
  4. ARTHROTEC [Concomitant]
     Active Substance: DICLOFENAC SODIUM\MISOPROSTOL
     Dosage: UNK
  5. ENBREL [Suspect]
     Active Substance: ETANERCEPT
     Indication: RHEUMATOID ARTHRITIS
     Dosage: UNK
     Route: 065
  6. METHOTREXATE [Concomitant]
     Active Substance: METHOTREXATE
  7. ARAVA [Concomitant]
     Active Substance: LEFLUNOMIDE
  8. PLAQUENIL [Concomitant]
     Active Substance: HYDROXYCHLOROQUINE SULFATE
  9. ACTEMRA [Concomitant]
     Active Substance: TOCILIZUMAB
  10. SIMPONI [Concomitant]
     Active Substance: GOLIMUMAB
  11. TYLENOL [Concomitant]
     Active Substance: ACETAMINOPHEN
     Dosage: UNK
  12. RABEPRAZOLE [Concomitant]
     Active Substance: RABEPRAZOLE
     Dosage: UNK
  13. HUMIRA [Concomitant]
     Active Substance: ADALIMUMAB
  14. REMICADE [Suspect]
     Active Substance: INFLIXIMAB
     Indication: RHEUMATOID ARTHRITIS
     Route: 065
  15. CIMZIA [Concomitant]
     Active Substance: CERTOLIZUMAB PEGOL

REACTIONS (8)
  - Pain [Unknown]
  - Rheumatoid arthritis [Unknown]
  - Blood cholesterol increased [Unknown]
  - Activities of daily living impaired [Unknown]
  - Drug hypersensitivity [Unknown]
  - Insomnia [Unknown]
  - Drug ineffective [Unknown]
  - Stress at work [Unknown]

NARRATIVE: CASE EVENT DATE: 2015
